FAERS Safety Report 4349958-X (Version None)
Quarter: 2004Q2

REPORT INFORMATION
  Report Type: 
  Country: None (occurrence: None)
  Receive Date: 20040426
  Receipt Date: 20040415
  Transmission Date: 20050107
  Serious: Yes (Other)
  Sender: FDA-Public Use
  Company Number: US-SHR-04-023495

PATIENT
  Age: 31 Year
  Sex: Female
  Weight: 65.8 kg

DRUGS (7)
  1. YASMIN [Suspect]
     Indication: MENORRHAGIA
     Dosage: SEE IMAGE
     Route: 048
     Dates: start: 20030201, end: 20030501
  2. YASMIN [Suspect]
     Indication: MENORRHAGIA
     Dosage: SEE IMAGE
     Route: 048
     Dates: start: 20040201, end: 20040329
  3. YASMIN [Suspect]
     Indication: MENORRHAGIA
     Dosage: SEE IMAGE
     Route: 048
     Dates: start: 20040401
  4. TOPAMAX [Concomitant]
  5. SYNTHROID [Concomitant]
  6. PROZAC (FLUOXETINE HYDROCHLORIDE) C [Concomitant]
  7. NEURONTIN [Concomitant]

REACTIONS (2)
  - HALLUCINATION [None]
  - SUICIDAL IDEATION [None]
